FAERS Safety Report 18228326 (Version 2)
Quarter: 2020Q4

REPORT INFORMATION
  Report Type: Spontaneous
  Country: US (occurrence: US)
  Receive Date: 20200903
  Receipt Date: 20201217
  Transmission Date: 20210113
  Serious: Yes (Other)
  Sender: FDA-Public Use
  Company Number: US-PFIZER INC-2019161880

PATIENT
  Age: 73 Year
  Sex: Female
  Weight: 81.65 kg

DRUGS (4)
  1. MOBIC [Concomitant]
     Active Substance: MELOXICAM
     Indication: NEUROPATHY PERIPHERAL
     Dosage: 7.5 MG, 1X/DAY
  2. LYRICA [Suspect]
     Active Substance: PREGABALIN
     Dosage: 50 MG, 2X/DAY
     Route: 048
     Dates: start: 2019
  3. LYRICA [Suspect]
     Active Substance: PREGABALIN
     Dosage: 50 MG, 3X/DAY
     Route: 048
  4. LYRICA [Suspect]
     Active Substance: PREGABALIN
     Indication: ARTHRITIS
     Dosage: 50 MG, 1X/DAY [TAKEN IN THE EVENING]
     Dates: start: 20190315, end: 2019

REACTIONS (7)
  - Off label use [Unknown]
  - Plantar fasciitis [Recovered/Resolved]
  - COVID-19 [Recovering/Resolving]
  - Product dose omission issue [Unknown]
  - Frustration tolerance decreased [Unknown]
  - Product use in unapproved indication [Unknown]
  - Sinusitis [Recovering/Resolving]

NARRATIVE: CASE EVENT DATE: 20190315
